FAERS Safety Report 18338295 (Version 2)
Quarter: 2020Q4

REPORT INFORMATION
  Report Type: Spontaneous
  Country: PL (occurrence: PL)
  Receive Date: 20201002
  Receipt Date: 20201007
  Transmission Date: 20210113
  Serious: Yes (Other)
  Sender: FDA-Public Use
  Company Number: PL-BAUSCH-BL-2020-027923

PATIENT
  Age: 75 Year
  Sex: Female

DRUGS (2)
  1. VERTEPORFIN [Suspect]
     Active Substance: VERTEPORFIN
     Indication: CHOROIDAL NEOVASCULARISATION
     Route: 042
     Dates: start: 200812, end: 200812
  2. VERTEPORFIN [Suspect]
     Active Substance: VERTEPORFIN
     Route: 042
     Dates: start: 200812, end: 200812

REACTIONS (5)
  - Visual impairment [Recovering/Resolving]
  - Neovascular age-related macular degeneration [Unknown]
  - Retinal ischaemia [Recovered/Resolved]
  - Subretinal fluid [Recovering/Resolving]
  - Retinal haemorrhage [Unknown]
